FAERS Safety Report 10181684 (Version 1)
Quarter: 2014Q2

REPORT INFORMATION
  Report Type: Spontaneous
  Country: CA (occurrence: CA)
  Receive Date: 20140519
  Receipt Date: 20140519
  Transmission Date: 20141212
  Serious: Yes (Other)
  Sender: FDA-Public Use
  Company Number: CA-PFIZER INC-2014132331

PATIENT
  Age: 62 Year
  Sex: Male

DRUGS (1)
  1. VIAGRA [Suspect]
     Dosage: HALF A 100 MG TABLET/ ONCE A WEEK
     Dates: start: 2001

REACTIONS (1)
  - Blindness [Not Recovered/Not Resolved]
